FAERS Safety Report 9346389 (Version 1)
Quarter: 2013Q2

REPORT INFORMATION
  Report Type: Spontaneous
  Country: FR (occurrence: FR)
  Receive Date: 20130613
  Receipt Date: 20130613
  Transmission Date: 20140414
  Serious: Yes (Hospitalization)
  Sender: FDA-Public Use
  Company Number: FR-PFIZER INC-2013172088

PATIENT
  Age: 70 Year
  Sex: Male

DRUGS (7)
  1. ADVIL [Suspect]
     Dosage: 1 DF, 3X/DAY
  2. ASPEGIC ENFANT [Suspect]
     Dosage: 250 MG, 1X/DAY
     Route: 048
     Dates: start: 2011
  3. PLAVIX [Suspect]
     Dosage: 1 DF, 1X/DAY
     Route: 048
     Dates: start: 2011, end: 20130404
  4. AMLODIPINE [Concomitant]
     Dosage: 10 MG, UNK
  5. ATORVASTATIN [Concomitant]
     Dosage: 10 MG, UNK
  6. LACTULOSE [Concomitant]
  7. DOLIPRANE [Concomitant]

REACTIONS (3)
  - Gastric ulcer haemorrhage [Recovering/Resolving]
  - Anaemia [Recovering/Resolving]
  - Melaena [Recovering/Resolving]
